FAERS Safety Report 10036533 (Version 3)
Quarter: 2014Q2

REPORT INFORMATION
  Report Type: Spontaneous
  Country: DE (occurrence: DE)
  Receive Date: 20140326
  Receipt Date: 20140506
  Transmission Date: 20141212
  Serious: Yes (Other)
  Sender: FDA-Public Use
  Company Number: DE-ROCHE-1370660

PATIENT
  Sex: Female

DRUGS (4)
  1. LUCENTIS [Suspect]
     Indication: VISUAL IMPAIRMENT
     Dosage: MOST RECENT DOSE ON 19/FEB/2014
     Route: 050
     Dates: start: 201311
  2. LUCENTIS [Suspect]
     Indication: MACULAR OEDEMA
     Route: 050
     Dates: start: 20140219
  3. LUCENTIS [Suspect]
     Indication: RETINAL VEIN OCCLUSION
     Route: 050
     Dates: start: 20140319
  4. DORZOLAMIDE HYDROCHLORIDE [Concomitant]

REACTIONS (7)
  - Macular oedema [Recovering/Resolving]
  - Condition aggravated [Unknown]
  - Visual field defect [Recovered/Resolved]
  - Visual acuity reduced [Recovering/Resolving]
  - Genital herpes [Unknown]
  - Cystitis [Not Recovered/Not Resolved]
  - Wrong technique in drug usage process [Unknown]
